FAERS Safety Report 20370045 (Version 1)
Quarter: 2022Q1

REPORT INFORMATION
  Report Type: Spontaneous
  Country: US (occurrence: None)
  Receive Date: 20220122
  Receipt Date: 20220122
  Transmission Date: 20220424
  Serious: No
  Sender: FDA-Public Use
  Company Number: None

PATIENT
  Age: 77 Year
  Sex: Female
  Weight: 78.75 kg

DRUGS (1)
  1. LEVOTHYROXINE SODIUM [Suspect]
     Active Substance: LEVOTHYROXINE SODIUM
     Indication: Hypothyroidism
     Dosage: OTHER QUANTITY : 90 TABLET(S);?
     Route: 048

REACTIONS (5)
  - Product quality issue [None]
  - Thyroid hormones decreased [None]
  - Fatigue [None]
  - Weight increased [None]
  - Exercise tolerance decreased [None]

NARRATIVE: CASE EVENT DATE: 20211223
